FAERS Safety Report 4731670-6 (Version None)
Quarter: 2005Q3

REPORT INFORMATION
  Report Type: 
  Country: None (occurrence: None)
  Receive Date: 20050802
  Receipt Date: 20050802
  Transmission Date: 20060218
  Serious: Yes (Hospitalization, Other)
  Sender: FDA-Public Use
  Company Number: None

PATIENT
  Sex: Female
  Weight: 84.5 kg

DRUGS (5)
  1. DOCETAXEL [Suspect]
     Indication: BREAST CANCER
     Dates: start: 20050721
  2. DOXORUBICIN HCL [Suspect]
     Dates: start: 20050721, end: 20050721
  3. CYCLOPHOSPHAMIDE [Suspect]
     Dates: start: 20050721, end: 20050721
  4. PACLITAXEL [Suspect]
  5. GEMCITABINE [Suspect]

REACTIONS (4)
  - BLOOD PRESSURE DECREASED [None]
  - FEBRILE NEUTROPENIA [None]
  - HEART RATE INCREASED [None]
  - SEPSIS [None]
